FAERS Safety Report 24083909 (Version 3)
Quarter: 2024Q3

REPORT INFORMATION
  Report Type: Report from Study
  Country: US (occurrence: US)
  Receive Date: 20240712
  Receipt Date: 20240828
  Transmission Date: 20241017
  Serious: Yes (Other)
  Sender: ABBVIE
  Company Number: US-ABBVIE-5834838

PATIENT
  Sex: Female

DRUGS (2)
  1. RINVOQ [Suspect]
     Active Substance: UPADACITINIB
     Indication: Arthralgia
     Dosage: PILL
     Route: 048
     Dates: start: 20221102, end: 20240614
  2. RINVOQ [Suspect]
     Active Substance: UPADACITINIB
     Indication: Arthralgia
     Dosage: PILL
     Route: 048
     Dates: start: 20240711

REACTIONS (4)
  - Abscess oral [Recovering/Resolving]
  - Exposure to fungus [Recovering/Resolving]
  - Pain [Recovering/Resolving]
  - Condition aggravated [Recovering/Resolving]

NARRATIVE: CASE EVENT DATE: 20240101
